APPROVED DRUG PRODUCT: TENUATE
Active Ingredient: DIETHYLPROPION HYDROCHLORIDE
Strength: 25MG
Dosage Form/Route: TABLET;ORAL
Application: N017668 | Product #001
Applicant: SANOFI AVENTIS US LLC
Approved: Approved Prior to Jan 1, 1982 | RLD: No | RS: No | Type: DISCN